FAERS Safety Report 4659968-0 (Version None)
Quarter: 2005Q2

REPORT INFORMATION
  Report Type: 
  Country: None (occurrence: None)
  Receive Date: 20050510
  Receipt Date: 20050427
  Transmission Date: 20051028
  Serious: Yes (Other)
  Sender: FDA-Public Use
  Company Number: 2005067291

PATIENT
  Age: 82 Year
  Sex: Female
  Weight: 73.4827 kg

DRUGS (8)
  1. TIKOSYN [Suspect]
     Indication: ATRIAL FIBRILLATION
     Dosage: BID INTERVAL: EVERY DAY), ORAL
     Route: 048
     Dates: start: 20050407, end: 20050412
  2. LEVOTHYROXINE SODIUM [Suspect]
     Indication: ILL-DEFINED DISORDER
  3. WARFARIN SODIUM [Concomitant]
  4. SERETIDE MITE [Concomitant]
  5. VALSARTAN [Concomitant]
  6. PROPAFENONE HCL [Concomitant]
  7. MACROGOL (MACROGOL) [Concomitant]
  8. IBUPROFEN [Concomitant]

REACTIONS (2)
  - DRUG INTERACTION [None]
  - HEART RATE INCREASED [None]
